FAERS Safety Report 20437414 (Version 1)
Quarter: 2022Q1

REPORT INFORMATION
  Report Type: Spontaneous
  Country: US (occurrence: None)
  Receive Date: 20220204
  Receipt Date: 20220204
  Transmission Date: 20220424
  Serious: Yes (Death)
  Sender: FDA-Public Use
  Company Number: None

PATIENT
  Age: 81 Year
  Sex: Female

DRUGS (8)
  1. LOKELMA [Suspect]
     Active Substance: SODIUM ZIRCONIUM CYCLOSILICATE
  2. ASPIRIN [Concomitant]
     Active Substance: ASPIRIN
  3. BISOPROLOL [Concomitant]
     Active Substance: BISOPROLOL
  4. CLONIDINE [Concomitant]
     Active Substance: CLONIDINE
  5. DOXAZOSIN [Concomitant]
     Active Substance: DOXAZOSIN MESYLATE
  6. RENVELA [Concomitant]
     Active Substance: SEVELAMER CARBONATE
  7. TEMAZEPAM [Concomitant]
     Active Substance: TEMAZEPAM
  8. SENSIPAR [Concomitant]
     Active Substance: CINACALCET HYDROCHLORIDE

REACTIONS (1)
  - Death [None]

NARRATIVE: CASE EVENT DATE: 20220201
